FAERS Safety Report 13603310 (Version 1)
Quarter: 2017Q2

REPORT INFORMATION
  Report Type: Spontaneous
  Country: DE (occurrence: DE)
  Receive Date: 20170601
  Receipt Date: 20170601
  Transmission Date: 20170830
  Serious: Yes (Other)
  Sender: FDA-Public Use
  Company Number: DE-MYLANLABS-2017M1031611

PATIENT

DRUGS (17)
  1. METHYLPHENIDAT [Suspect]
     Active Substance: METHYLPHENIDATE
     Dosage: 20 MG, UNK
     Route: 048
     Dates: start: 20160908, end: 20160909
  2. PANTOPRAZOL [Concomitant]
     Active Substance: PANTOPRAZOLE SODIUM
     Dosage: 40 MG, UNK
     Route: 048
     Dates: start: 20160806, end: 20160909
  3. SERTRALINE [Suspect]
     Active Substance: SERTRALINE HYDROCHLORIDE
     Dosage: 150 MG, UNK
     Route: 048
     Dates: start: 20160711, end: 20160721
  4. SERTRALINE [Suspect]
     Active Substance: SERTRALINE HYDROCHLORIDE
     Dosage: 200 MG, UNK
     Route: 048
     Dates: start: 20160722, end: 20160909
  5. PREGABALIN. [Suspect]
     Active Substance: PREGABALIN
     Dosage: 75 MG, UNK
     Route: 048
     Dates: start: 20160817, end: 20160822
  6. DICLOFENAC [Concomitant]
     Active Substance: DICLOFENAC
     Dosage: 150 MG, UNK
     Route: 048
     Dates: start: 20160714, end: 20160810
  7. QUETIAPINE. [Suspect]
     Active Substance: QUETIAPINE
     Dosage: 50 MG, UNK
     Route: 048
     Dates: start: 20160309, end: 20160724
  8. PANTOPRAZOL [Concomitant]
     Active Substance: PANTOPRAZOLE SODIUM
     Dosage: 20 MG, UNK
     Route: 048
     Dates: start: 20160714, end: 20160805
  9. SERTRALINE [Suspect]
     Active Substance: SERTRALINE HYDROCHLORIDE
     Dosage: 100 MG, UNK
     Route: 048
     Dates: start: 20160309, end: 20160710
  10. PREGABALIN. [Suspect]
     Active Substance: PREGABALIN
     Dosage: 25 MG, UNK
     Route: 048
     Dates: start: 20160808, end: 20160816
  11. QUETIAPINE. [Suspect]
     Active Substance: QUETIAPINE
     Dosage: 150 MG, UNK
     Route: 048
     Dates: start: 20160728, end: 20160816
  12. METHYLPHENIDAT [Suspect]
     Active Substance: METHYLPHENIDATE
     Dosage: 10 MG, UNK
     Route: 048
     Dates: start: 20160901, end: 20160907
  13. QUETIAPINE. [Suspect]
     Active Substance: QUETIAPINE
     Dosage: 75 MG, UNK
     Route: 048
     Dates: start: 20160830, end: 20160909
  14. QUETIAPINE RETARD [Concomitant]
     Active Substance: QUETIAPINE
     Dosage: 150 MG, UNK
     Route: 048
     Dates: start: 20160725, end: 20160727
  15. SERTRALINE [Suspect]
     Active Substance: SERTRALINE HYDROCHLORIDE
     Dosage: 25 MG, UNK
     Route: 048
     Dates: start: 20160917, end: 20161003
  16. QUETIAPINE. [Suspect]
     Active Substance: QUETIAPINE
     Dosage: 125 MG, UNK
     Route: 048
     Dates: start: 20160817, end: 20160829
  17. PREGABALIN. [Suspect]
     Active Substance: PREGABALIN
     Dosage: 100 MG, UNK
     Route: 048
     Dates: start: 20160823, end: 20160829

REACTIONS (3)
  - Muscular weakness [Recovering/Resolving]
  - Myalgia [Recovering/Resolving]
  - Blood creatine phosphokinase increased [Recovering/Resolving]

NARRATIVE: CASE EVENT DATE: 20160809
